FAERS Safety Report 11127335 (Version 1)
Quarter: 2015Q2

REPORT INFORMATION
  Report Type: Spontaneous
  Country: IT (occurrence: None)
  Receive Date: 20150519
  Receipt Date: 20150519
  Transmission Date: 20150821
  Serious: No
  Sender: FDA-Public Use
  Company Number: 1505ITA002074

PATIENT
  Age: 20 Year
  Sex: Male

DRUGS (2)
  1. OKI (KETOPROFEN LYSINE) GRANULES, 80 MG [Suspect]
     Active Substance: KETOPROFEN LYSINE
     Indication: INFLUENZA
     Route: 048
     Dates: start: 20150301, end: 20150301
  2. ISOCEF (CEFTIBUTEN) CAPSULE, 400 MG [Suspect]
     Active Substance: CEFTIBUTEN
     Route: 048
     Dates: start: 20150301, end: 20150301

REACTIONS (1)
  - Urticaria [None]

NARRATIVE: CASE EVENT DATE: 20150301
